FAERS Safety Report 6091111-6 (Version None)
Quarter: 2009Q1

REPORT INFORMATION
  Report Type: 
  Country: None (occurrence: None)
  Receive Date: 20090225
  Receipt Date: 20090219
  Transmission Date: 20090719
  Serious: Yes (Hospitalization)
  Sender: FDA-Public Use
  Company Number: US-JNJFOC-20090205523

PATIENT
  Sex: Female
  Weight: 86.18 kg

DRUGS (7)
  1. DURAGESIC-100 [Suspect]
     Route: 062
  2. DURAGESIC-100 [Suspect]
     Route: 062
  3. DURAGESIC-100 [Suspect]
     Indication: BACK PAIN
     Route: 062
  4. MORPHINE [Concomitant]
     Indication: PAIN
     Dosage: 15-30 MG,1-2 TABLETS DAILY AS NEEDED
     Route: 048
  5. DARVOCET [Concomitant]
     Indication: PAIN
     Dosage: EVERY 4 HOURS AS NEEDED
     Route: 048
  6. INSULIN [Concomitant]
     Indication: DIABETES MELLITUS
     Dosage: 5 UNITS DAILY
     Route: 058
  7. IBUPROFEN [Concomitant]
     Indication: PAIN
     Dosage: 800 MG TABLET DAILY AS NEEDED
     Route: 048

REACTIONS (8)
  - BLOOD GLUCOSE DECREASED [None]
  - CHRONIC OBSTRUCTIVE PULMONARY DISEASE [None]
  - CONTUSION [None]
  - FALL [None]
  - INADEQUATE ANALGESIA [None]
  - INCORRECT DRUG ADMINISTRATION DURATION [None]
  - PULMONARY THROMBOSIS [None]
  - STUPOR [None]
